FAERS Safety Report 18994014 (Version 1)
Quarter: 2021Q1

REPORT INFORMATION
  Report Type: Spontaneous
  Country: US (occurrence: US)
  Receive Date: 20210310
  Receipt Date: 20210310
  Transmission Date: 20210420
  Serious: No
  Sender: FDA-Public Use
  Company Number: US-BAUSCH-BL-2021-004652

PATIENT
  Age: 50 Year
  Sex: Female

DRUGS (3)
  1. EMGALITY [Concomitant]
     Active Substance: GALCANEZUMAB-GNLM
     Indication: PRODUCT USED FOR UNKNOWN INDICATION
  2. LUMIFY [Suspect]
     Active Substance: BRIMONIDINE TARTRATE
     Indication: OCULAR ICTERUS
     Dosage: 1 DROP IN BOTH EYES
     Route: 047
     Dates: start: 20210203
  3. LUMIFY [Suspect]
     Active Substance: BRIMONIDINE TARTRATE
     Indication: PRODUCT USE IN UNAPPROVED INDICATION

REACTIONS (5)
  - Drug effective for unapproved indication [Unknown]
  - Nasal congestion [Not Recovered/Not Resolved]
  - Sneezing [Recovered/Resolved]
  - Nasal discomfort [Not Recovered/Not Resolved]
  - Product use in unapproved indication [Unknown]

NARRATIVE: CASE EVENT DATE: 20210203
